FAERS Safety Report 6250615-3 (Version None)
Quarter: 2009Q2

REPORT INFORMATION
  Report Type: 
  Country: None (occurrence: None)
  Receive Date: 20090630
  Receipt Date: 20090622
  Transmission Date: 20091009
  Serious: Yes (Other)
  Sender: FDA-Public Use
  Company Number: CL-ASTRAZENECA-2009UW16885

PATIENT
  Sex: Male

DRUGS (2)
  1. ZOLADEX [Suspect]
     Indication: PROSTATE CANCER
     Route: 058
     Dates: start: 20070301
  2. DIETINILESTRADILOL [Concomitant]

REACTIONS (4)
  - PYELONEPHRITIS [None]
  - RENAL FAILURE CHRONIC [None]
  - SEPSIS [None]
  - URETERIC OBSTRUCTION [None]
